FAERS Safety Report 16093018 (Version 1)
Quarter: 2019Q1

REPORT INFORMATION
  Report Type: Spontaneous
  Country: FR (occurrence: FR)
  Receive Date: 20190320
  Receipt Date: 20190320
  Transmission Date: 20190418
  Serious: Yes (Other)
  Sender: FDA-Public Use
  Company Number: FR-ACCORD-113975

PATIENT
  Age: 66 Year
  Sex: Male
  Weight: 91.5 kg

DRUGS (2)
  1. BENDAMUSTINE ACCORD [Suspect]
     Active Substance: BENDAMUSTINE
     Indication: MARGINAL ZONE LYMPHOMA
     Route: 042
     Dates: start: 201802, end: 20180725
  2. TRUXIMA [Suspect]
     Active Substance: RITUXIMAB-ABBS
     Indication: MARGINAL ZONE LYMPHOMA
     Route: 042
     Dates: start: 201802, end: 20180724

REACTIONS (3)
  - Mouth ulceration [Not Recovered/Not Resolved]
  - Oesophagitis [Not Recovered/Not Resolved]
  - Balanoposthitis [Not Recovered/Not Resolved]

NARRATIVE: CASE EVENT DATE: 201807
